FAERS Safety Report 5046174-3 (Version None)
Quarter: 2006Q3

REPORT INFORMATION
  Report Type: 
  Country: None (occurrence: None)
  Receive Date: 20060710
  Receipt Date: 20060629
  Transmission Date: 20061208
  Serious: Yes (Death)
  Sender: FDA-Public Use
  Company Number: US-JNJFOC-20060606621

PATIENT
  Sex: Male
  Weight: 113.4 kg

DRUGS (12)
  1. REMICADE [Suspect]
     Indication: RHEUMATOID ARTHRITIS
     Route: 042
  2. ALLOPRINOL [Concomitant]
  3. COUMADIN [Concomitant]
  4. FUROSEMIDE [Concomitant]
  5. KLOR-CON [Concomitant]
  6. LEVOTHROID [Concomitant]
  7. MONOPRIL [Concomitant]
  8. PREDNISONE TAB [Concomitant]
  9. SPIRONOLACTONE [Concomitant]
  10. ZOCOR [Concomitant]
  11. TOPROL-XL [Concomitant]
  12. PROTONIX [Concomitant]

REACTIONS (2)
  - DEATH [None]
  - MENINGITIS [None]
